FAERS Safety Report 19518446 (Version 1)
Quarter: 2021Q3

REPORT INFORMATION
  Report Type: Spontaneous
  Country: US (occurrence: US)
  Receive Date: 20210709
  Receipt Date: 20210709
  Transmission Date: 20211014
  Serious: No
  Sender: FDA-Public Use
  Company Number: None

PATIENT
  Age: 71 Year
  Sex: Female
  Weight: 74 kg

DRUGS (15)
  1. ASPIRIN 81MG [Concomitant]
     Active Substance: ASPIRIN
  2. CALCIUM CARBONATE 600MG [Concomitant]
  3. FOSAMAX [Concomitant]
     Active Substance: ALENDRONATE SODIUM
  4. STOOL SOFTENER (DOCUSATE) [Concomitant]
     Active Substance: DOCUSATE
  5. CAPECITABINE. [Suspect]
     Active Substance: CAPECITABINE
     Indication: RECTAL CANCER
     Route: 048
     Dates: start: 20210602
  6. ALENDRONATE 70MG [Concomitant]
     Active Substance: ALENDRONATE SODIUM
  7. LISINOPRIL 10MG [Concomitant]
     Active Substance: LISINOPRIL
  8. AMLODIPINE [Concomitant]
     Active Substance: AMLODIPINE BESYLATE
  9. ISOSORBIDE MONONITRATE ER 60MG [Concomitant]
  10. LOPERAMIDE 2MG [Concomitant]
     Active Substance: LOPERAMIDE
  11. ATORVASTATIN 40MG [Concomitant]
     Active Substance: ATORVASTATIN
  12. NEXIUM 20MG [Concomitant]
  13. ACETAMINOPHEN 500MG [Concomitant]
     Active Substance: ACETAMINOPHEN
  14. METAMUCIL [Concomitant]
     Active Substance: PLANTAGO SEED
  15. MULTIVITAMIN [Concomitant]
     Active Substance: VITAMINS

REACTIONS (2)
  - Abdominal discomfort [None]
  - Decreased appetite [None]

NARRATIVE: CASE EVENT DATE: 20210708
